FAERS Safety Report 9696193 (Version 1)
Quarter: 2013Q4

REPORT INFORMATION
  Report Type: Spontaneous
  Country: VE (occurrence: VE)
  Receive Date: 20131119
  Receipt Date: 20131119
  Transmission Date: 20140711
  Serious: Yes (Other)
  Sender: FDA-Public Use
  Company Number: PHHY2013VE130347

PATIENT
  Sex: Female

DRUGS (2)
  1. FORADIL [Suspect]
     Indication: LUNG DISORDER
     Dosage: UNK
  2. MIFLONIDE [Suspect]
     Indication: LUNG DISORDER
     Dosage: UNK

REACTIONS (3)
  - Asphyxia [Not Recovered/Not Resolved]
  - Fatigue [Not Recovered/Not Resolved]
  - Oxygen saturation decreased [Not Recovered/Not Resolved]
